FAERS Safety Report 9913494 (Version 1)
Quarter: 2014Q1

REPORT INFORMATION
  Report Type: Spontaneous
  Country: FR (occurrence: None)
  Receive Date: 20140218
  Receipt Date: 20140218
  Transmission Date: 20141002
  Serious: Yes (Other)
  Sender: FDA-Public Use
  Company Number: IMP_07467_2014

PATIENT
  Age: 39 Year
  Sex: Male

DRUGS (3)
  1. BACLOFEN [Suspect]
     Indication: ALCOHOLISM
  2. RISPERIDONE (RISPERIDONE) [Suspect]
     Indication: BIPOLAR DISORDER
     Dosage: DURING WEEK 1
  3. LITHIUM [Suspect]
     Indication: BIPOLAR DISORDER

REACTIONS (7)
  - Overdose [None]
  - Hypertriglyceridaemia [None]
  - Treatment noncompliance [None]
  - Mania [None]
  - Blood cholesterol increased [None]
  - Hyponatraemia [None]
  - Weight increased [None]
